FAERS Safety Report 8154866-2 (Version None)
Quarter: 2012Q1

REPORT INFORMATION
  Report Type: 
  Country: None (occurrence: None)
  Receive Date: 20120221
  Receipt Date: 20120214
  Transmission Date: 20120608
  Serious: Yes (Death, Other)
  Sender: FDA-Public Use
  Company Number: PHHY2012FR013084

PATIENT
  Age: 36 Year
  Sex: Male

DRUGS (4)
  1. SANDOSTATIN [Suspect]
     Indication: HYPOGLYCAEMIA
     Dosage: 2 DF, DAILY(2 INJECTION)
     Route: 058
  2. SANDOSTATIN [Suspect]
     Dosage: 1000 UG, PER DAY
     Route: 058
  3. DEXTROSE [Concomitant]
     Dosage: 10 %, UNK
  4. SANDOSTATIN [Suspect]
     Dosage: 1500 UG, PER DAY
     Route: 058

REACTIONS (5)
  - HYPOGLYCAEMIC COMA [None]
  - DEATH [None]
  - BLOOD GLUCOSE DECREASED [None]
  - NERVOUS SYSTEM DISORDER [None]
  - NEOPLASM PROGRESSION [None]
